FAERS Safety Report 10445141 (Version 3)
Quarter: 2015Q2

REPORT INFORMATION
  Report Type: Spontaneous
  Country: US (occurrence: US)
  Receive Date: 20140910
  Receipt Date: 20150417
  Transmission Date: 20150821
  Serious: No
  Sender: FDA-Public Use
  Company Number: US-PFIZER INC-2014248967

PATIENT
  Age: 63 Year
  Sex: Female

DRUGS (1)
  1. NICOTROL [Suspect]
     Active Substance: NICOTINE
     Indication: SMOKING CESSATION THERAPY
     Dosage: 10 MG/ML 1 SPRAY 8 HOURS AS NEEDED
     Route: 045
     Dates: start: 20140818

REACTIONS (5)
  - Burning sensation [Recovered/Resolved]
  - Lacrimation increased [Recovered/Resolved]
  - Accidental exposure to product [Recovered/Resolved]
  - Sneezing [Recovered/Resolved]
  - Dysphonia [Unknown]

NARRATIVE: CASE EVENT DATE: 20140818
